FAERS Safety Report 18255771 (Version 1)
Quarter: 2020Q3

REPORT INFORMATION
  Report Type: Other
  Country: US (occurrence: US)
  Receive Date: 20200910
  Receipt Date: 20200910
  Transmission Date: 20201103
  Serious: No
  Sender: FDA-Public Use
  Company Number: US-LEADIANT BIOSCIENCES INC-2019STPI000441

PATIENT

DRUGS (21)
  1. ASPIRIN (E.C.) [Concomitant]
     Active Substance: ASPIRIN
  2. ETOPOSIDE. [Concomitant]
     Active Substance: ETOPOSIDE
  3. FAMOTIDINE. [Concomitant]
     Active Substance: FAMOTIDINE
  4. VINCRISTINE [Concomitant]
     Active Substance: VINCRISTINE
  5. DEXAMETHASONE. [Concomitant]
     Active Substance: DEXAMETHASONE
  6. RITUXAN [Concomitant]
     Active Substance: RITUXIMAB
  7. SPIRONOLACTONE. [Concomitant]
     Active Substance: SPIRONOLACTONE
     Dosage: UNK
  8. TYLENOL [Concomitant]
     Active Substance: ACETAMINOPHEN
  9. CYCLOPHOSPHAM [Concomitant]
  10. ATORVASTATIN [Concomitant]
     Active Substance: ATORVASTATIN
  11. LOSARTAN. [Concomitant]
     Active Substance: LOSARTAN
  12. PROCHLORPERAZINE. [Concomitant]
     Active Substance: PROCHLORPERAZINE
  13. ALLOPURINOL. [Concomitant]
     Active Substance: ALLOPURINOL
  14. CARVEDILOL. [Concomitant]
     Active Substance: CARVEDILOL
  15. DOXORUBICIN [Concomitant]
     Active Substance: DOXORUBICIN
  16. IBUPROFEN. [Concomitant]
     Active Substance: IBUPROFEN
  17. SODIUM CHLORIDE. [Concomitant]
     Active Substance: SODIUM CHLORIDE
  18. ZOFRAN [Concomitant]
     Active Substance: ONDANSETRON HYDROCHLORIDE
  19. MATULANE [Suspect]
     Active Substance: PROCARBAZINE HYDROCHLORIDE
     Indication: DIFFUSE LARGE B-CELL LYMPHOMA
     Dosage: 150 MILLIGRAM, QD
     Route: 048
     Dates: start: 20190829
  20. KEFLEX [Concomitant]
     Active Substance: CEPHALEXIN
  21. PREDNISONE. [Concomitant]
     Active Substance: PREDNISONE

REACTIONS (2)
  - Fatigue [Unknown]
  - Asthenia [Unknown]
